FAERS Safety Report 11287675 (Version 5)
Quarter: 2015Q4

REPORT INFORMATION
  Report Type: Spontaneous
  Country: US (occurrence: US)
  Receive Date: 20150721
  Receipt Date: 20151106
  Transmission Date: 20160304
  Serious: No
  Sender: FDA-Public Use
  Company Number: US-PFIZER INC-2015237059

PATIENT
  Age: 88 Year
  Sex: Female

DRUGS (3)
  1. CYMBALTA [Concomitant]
     Active Substance: DULOXETINE HYDROCHLORIDE
     Indication: NEURALGIA
     Dosage: 60 MG, DAILY
     Dates: start: 2009
  2. LYRICA [Suspect]
     Active Substance: PREGABALIN
     Indication: NEURALGIA
     Dosage: 25 MG, 2X/DAY
     Route: 048
     Dates: start: 20150528, end: 20150528
  3. TEGRETOL [Concomitant]
     Active Substance: CARBAMAZEPINE
     Indication: TRIGEMINAL NEURALGIA
     Dosage: 400 MG, 2X/DAY
     Dates: start: 2001

REACTIONS (6)
  - Feeling drunk [Unknown]
  - Headache [Unknown]
  - Fatigue [Recovered/Resolved]
  - Tremor [Unknown]
  - Malaise [Unknown]
  - Somnolence [Unknown]
